FAERS Safety Report 6765143-6 (Version None)
Quarter: 2010Q2

REPORT INFORMATION
  Report Type: 
  Country: None (occurrence: None)
  Receive Date: 20100610
  Receipt Date: 20100610
  Transmission Date: 20101027
  Serious: No
  Sender: FDA-Public Use
  Company Number: None

PATIENT

DRUGS (1)
  1. ASTELIN [Suspect]
     Dosage: 2 SPRAYS IN NOSE TWICE DAILY
     Route: 045
     Dates: start: 20100521, end: 20100522

REACTIONS (1)
  - SWOLLEN TONGUE [None]
